FAERS Safety Report 8913420 (Version 1)
Quarter: 2012Q4

REPORT INFORMATION
  Report Type: 
  Country: ES (occurrence: ES)
  Receive Date: 20121119
  Receipt Date: 20121119
  Transmission Date: 20130627
  Serious: Yes (Other)
  Sender: FDA-Public Use
  Company Number: ES-ASTELLAS-2012EU009907

PATIENT

DRUGS (1)
  1. TACROLIMUS SYSTEMIC [Suspect]
     Indication: BONE MARROW TRANSPLANT
     Dosage: UNK
     Route: 065

REACTIONS (3)
  - Off label use [Unknown]
  - Immunosuppressant drug level increased [Unknown]
  - Locked-in syndrome [Unknown]
